FAERS Safety Report 12203246 (Version 1)
Quarter: 2016Q1

REPORT INFORMATION
  Report Type: Spontaneous
  Country: US (occurrence: None)
  Receive Date: 20160321
  Receipt Date: 20160321
  Transmission Date: 20160526
  Serious: No
  Sender: FDA-Public Use
  Company Number: None

PATIENT
  Age: 41 Year
  Sex: Male

DRUGS (3)
  1. ALPRAZOLAM 1MG [Suspect]
     Active Substance: ALPRAZOLAM
  2. MORPHINE [Suspect]
     Active Substance: MORPHINE
  3. PERCOCET [Concomitant]
     Active Substance: ACETAMINOPHEN\OXYCODONE HYDROCHLORIDE

REACTIONS (2)
  - Respiratory distress [None]
  - Unresponsive to stimuli [None]

NARRATIVE: CASE EVENT DATE: 20150804
